FAERS Safety Report 10191319 (Version 1)
Quarter: 2014Q2

REPORT INFORMATION
  Report Type: Spontaneous
  Country: US (occurrence: None)
  Receive Date: 20140522
  Receipt Date: 20140522
  Transmission Date: 20141212
  Serious: No
  Sender: FDA-Public Use
  Company Number: None

PATIENT
  Age: 33 Year
  Sex: Male

DRUGS (1)
  1. RISPERIDONE 1MG [Suspect]
     Indication: MENTAL DISORDER
     Dosage: UNKNOWN, 1MG, BID, PO
     Route: 048

REACTIONS (2)
  - Urinary hesitation [None]
  - Dry mouth [None]
